FAERS Safety Report 19814191 (Version 1)
Quarter: 2021Q3

REPORT INFORMATION
  Report Type: Spontaneous
  Country: US (occurrence: US)
  Receive Date: 20210910
  Receipt Date: 20210910
  Transmission Date: 20211014
  Serious: No
  Sender: FDA-Public Use
  Company Number: US-EIGER BIOPHARMACEUTICALS-EIG-2021-000006

PATIENT

DRUGS (1)
  1. ZOKINVY [Suspect]
     Active Substance: LONAFARNIB
     Indication: PROGERIA
     Dosage: 50 MILLIGRAM (TAKE ONE CAPSULE)
     Route: 048
     Dates: start: 20210309

REACTIONS (2)
  - Abdominal discomfort [Unknown]
  - Urinary tract infection [Unknown]
